FAERS Safety Report 9154678 (Version 1)
Quarter: 2013Q1

REPORT INFORMATION
  Report Type: Spontaneous
  Country: US (occurrence: US)
  Receive Date: 20130311
  Receipt Date: 20130311
  Transmission Date: 20140127
  Serious: No
  Sender: FDA-Public Use
  Company Number: US-PFIZER INC-2013082064

PATIENT
  Age: 40 Year
  Sex: Male
  Weight: 84.81 kg

DRUGS (6)
  1. CHANTIX [Suspect]
     Indication: SMOKING CESSATION THERAPY
     Dosage: UNK
     Dates: start: 20130228
  2. CHANTIX [Suspect]
     Dosage: 1 MG, 2X/DAY
  3. OXYCODONE [Concomitant]
     Dosage: 10 MG, 4X/DAY
  4. MORPHINE [Concomitant]
     Dosage: 50 MG, 2X/DAY
  5. NAPROXEN [Concomitant]
     Dosage: 500 MG, 2X/DAY
  6. TAMSULOSIN [Concomitant]
     Dosage: 0.4 MG, 1X/DAY

REACTIONS (3)
  - Off label use [Unknown]
  - Nausea [Not Recovered/Not Resolved]
  - Vomiting [Not Recovered/Not Resolved]
